FAERS Safety Report 19888938 (Version 1)
Quarter: 2021Q3

REPORT INFORMATION
  Report Type: Report from Study
  Country: PA (occurrence: PA)
  Receive Date: 20210928
  Receipt Date: 20210928
  Transmission Date: 20211014
  Serious: Yes (Other)
  Sender: FDA-Public Use
  Company Number: NVSC2021PA147898

PATIENT
  Sex: Male

DRUGS (3)
  1. REVOLADE [Suspect]
     Active Substance: ELTROMBOPAG OLAMINE
     Dosage: 50 MG, QD (1 TABLETS)
     Route: 048
  2. REVOLADE [Suspect]
     Active Substance: ELTROMBOPAG OLAMINE
     Dosage: 50 MG, QD (2 TABLETS)
     Route: 048
     Dates: end: 202107
  3. REVOLADE [Suspect]
     Active Substance: ELTROMBOPAG OLAMINE
     Indication: IMMUNE THROMBOCYTOPENIA
     Dosage: 50 MG, QD (2 TABLETS)
     Route: 048
     Dates: start: 202012

REACTIONS (11)
  - Hepatic cirrhosis [Unknown]
  - Malaise [Unknown]
  - Hepatic steatosis [Unknown]
  - Blood bilirubin increased [Recovered/Resolved]
  - Somnolence [Unknown]
  - Gastric disorder [Unknown]
  - Abdominal pain upper [Unknown]
  - Fatigue [Unknown]
  - Hepatitis [Recovering/Resolving]
  - Tremor [Unknown]
  - Platelet count decreased [Unknown]
